FAERS Safety Report 14486054 (Version 1)
Quarter: 2018Q1

REPORT INFORMATION
  Report Type: Spontaneous
  Country: US (occurrence: US)
  Receive Date: 20180205
  Receipt Date: 20180205
  Transmission Date: 20180509
  Serious: Yes (Hospitalization, Other)
  Sender: FDA-Public Use
  Company Number: US-ASTELLAS-2018US005592

PATIENT
  Age: 57 Year
  Sex: Male

DRUGS (2)
  1. TACROLIMUS. [Suspect]
     Active Substance: TACROLIMUS
     Dosage: UNK UNK, UNKNOWN FREQ.
     Route: 065
  2. TACROLIMUS. [Suspect]
     Active Substance: TACROLIMUS
     Indication: RENAL TRANSPLANT
     Dosage: UNK UNK, UNKNOWN FREQ.
     Route: 065

REACTIONS (11)
  - Cytomegalovirus infection [Recovering/Resolving]
  - Renal failure [Recovering/Resolving]
  - Kidney transplant rejection [Recovering/Resolving]
  - Disseminated intravascular coagulation [Recovering/Resolving]
  - Pancytopenia [Recovering/Resolving]
  - Upper gastrointestinal haemorrhage [Recovering/Resolving]
  - Histoplasmosis disseminated [Recovered/Resolved]
  - Sepsis [Recovering/Resolving]
  - Tubulointerstitial nephritis [Recovering/Resolving]
  - Epstein-Barr virus infection [Recovering/Resolving]
  - Blood lactate dehydrogenase increased [Recovering/Resolving]
